FAERS Safety Report 6838057-0 (Version None)
Quarter: 2010Q3

REPORT INFORMATION
  Report Type: 
  Country: None (occurrence: None)
  Receive Date: 20100713
  Receipt Date: 20070530
  Transmission Date: 20110219
  Serious: No
  Sender: FDA-Public Use
  Company Number: US-PFIZER INC-2007043628

PATIENT
  Sex: Male
  Weight: 93.4 kg

DRUGS (5)
  1. CHANTIX [Suspect]
     Indication: SMOKING CESSATION THERAPY
     Dates: start: 20070522
  2. XANAX [Concomitant]
  3. VITAMINS [Concomitant]
  4. GEMFIBROZIL [Concomitant]
  5. ALLEGRA D 24 HOUR [Concomitant]
     Indication: HYPERSENSITIVITY

REACTIONS (3)
  - DIZZINESS [None]
  - TOBACCO USER [None]
  - WRONG TECHNIQUE IN DRUG USAGE PROCESS [None]
